FAERS Safety Report 16171856 (Version 1)
Quarter: 2019Q2

REPORT INFORMATION
  Report Type: Report from Study
  Country: GR (occurrence: GR)
  Receive Date: 20190408
  Receipt Date: 20190408
  Transmission Date: 20190711
  Serious: Yes (Other)
  Sender: FDA-Public Use
  Company Number: GR-ELI_LILLY_AND_COMPANY-GR201904003309

PATIENT
  Age: 53 Year
  Sex: Male

DRUGS (1)
  1. TERIPARATIDE [Suspect]
     Active Substance: TERIPARATIDE
     Indication: OSTEOPOROSIS
     Dosage: 20 UG, UNKNOWN
     Route: 058
     Dates: start: 20180524

REACTIONS (4)
  - Speech disorder [Unknown]
  - Bacterial infection [Unknown]
  - Cerebrovascular accident [Recovered/Resolved with Sequelae]
  - Blood pressure decreased [Unknown]

NARRATIVE: CASE EVENT DATE: 20190330
